FAERS Safety Report 11786867 (Version 2)
Quarter: 2015Q4

REPORT INFORMATION
  Report Type: Spontaneous
  Country: US (occurrence: US)
  Receive Date: 20151130
  Receipt Date: 20151223
  Transmission Date: 20160305
  Serious: Yes (Other)
  Sender: FDA-Public Use
  Company Number: US-BAYER-2015-470587

PATIENT
  Age: 61 Year
  Sex: Male

DRUGS (1)
  1. EOVIST [Suspect]
     Active Substance: GADOXETATE DISODIUM
     Indication: NUCLEAR MAGNETIC RESONANCE IMAGING
     Dosage: UNK
     Dates: start: 20151021, end: 20151021

REACTIONS (3)
  - Irregular breathing [None]
  - Unresponsive to stimuli [None]
  - Respiratory rate increased [None]

NARRATIVE: CASE EVENT DATE: 20151021
